FAERS Safety Report 7590913-4 (Version None)
Quarter: 2011Q3

REPORT INFORMATION
  Report Type: 
  Country: None (occurrence: None)
  Receive Date: 20110705
  Receipt Date: 20110627
  Transmission Date: 20111222
  Serious: Yes (Other)
  Sender: FDA-Public Use
  Company Number: PHEH2006US14747

PATIENT
  Sex: Female

DRUGS (10)
  1. ZOMETA [Suspect]
     Dosage: UNK
     Dates: start: 20040101
  2. LISINOPRIL [Concomitant]
  3. CALCIUM CARBONATE [Concomitant]
  4. TEMAZEPAM [Concomitant]
  5. GLUCOSAMINE [Concomitant]
  6. VITAMIN B6 [Concomitant]
  7. PAROXETINE HCL [Concomitant]
  8. FERROUS SULFATE TAB [Concomitant]
  9. NADOLOL [Concomitant]
  10. FEMARA [Concomitant]

REACTIONS (27)
  - DECREASED INTEREST [None]
  - HEPATIC LESION [None]
  - BILE DUCT CANCER [None]
  - GALLBLADDER DISORDER [None]
  - OSTEONECROSIS OF JAW [None]
  - HYPERTENSION [None]
  - TYPE 2 DIABETES MELLITUS [None]
  - NEOPLASM MALIGNANT [None]
  - HYPOAESTHESIA [None]
  - LYMPHADENOPATHY [None]
  - METASTASES TO BONE [None]
  - OBESITY [None]
  - LYMPHADENITIS [None]
  - METASTASES TO LIVER [None]
  - CHOLELITHIASIS [None]
  - RENAL CYST [None]
  - FISTULA DISCHARGE [None]
  - BREAST CANCER METASTATIC [None]
  - ANXIETY [None]
  - RHEUMATOID ARTHRITIS [None]
  - EXPOSED BONE IN JAW [None]
  - PAIN [None]
  - ERYTHEMA [None]
  - BILIARY DILATATION [None]
  - GENERAL PHYSICAL HEALTH DETERIORATION [None]
  - HYPERLIPIDAEMIA [None]
  - OSTEOPENIA [None]
